FAERS Safety Report 24100897 (Version 1)
Quarter: 2024Q3

REPORT INFORMATION
  Report Type: Spontaneous
  Country: US (occurrence: US)
  Receive Date: 20240717
  Receipt Date: 20240717
  Transmission Date: 20241017
  Serious: No
  Sender: NOVO NORDISK
  Company Number: US-NOVOPROD-1224203

PATIENT
  Age: 49 Year
  Sex: Female

DRUGS (1)
  1. OZEMPIC [Suspect]
     Active Substance: SEMAGLUTIDE
     Indication: Type 2 diabetes mellitus
     Dosage: 0.25 MG FOR 4 WEEKS, THEN TOOK 1 DOSE OF 0.5 MG ON 07-MAY-2024 - NO CHANGE
     Route: 058
     Dates: start: 202404

REACTIONS (4)
  - Bowel movement irregularity [Not Recovered/Not Resolved]
  - Functional gastrointestinal disorder [Not Recovered/Not Resolved]
  - Blood creatine decreased [Not Recovered/Not Resolved]
  - Protein total decreased [Not Recovered/Not Resolved]

NARRATIVE: CASE EVENT DATE: 20240401
